FAERS Safety Report 7975126-6 (Version None)
Quarter: 2011Q4

REPORT INFORMATION
  Report Type: 
  Country: None (occurrence: None)
  Receive Date: 20111213
  Receipt Date: 20111101
  Transmission Date: 20120403
  Serious: No
  Sender: FDA-Public Use
  Company Number: US-AMGEN-USASP2011056822

PATIENT
  Age: 68 Year
  Sex: Female

DRUGS (1)
  1. ENBREL [Suspect]
     Indication: RHEUMATOID ARTHRITIS
     Dosage: 50 MG, QWK
     Dates: start: 20020805, end: 20111003

REACTIONS (8)
  - RHEUMATOID ARTHRITIS [None]
  - LIGAMENT RUPTURE [None]
  - THERAPEUTIC RESPONSE DECREASED [None]
  - PELVIC PAIN [None]
  - FINGER DEFORMITY [None]
  - BACK PAIN [None]
  - JOINT SWELLING [None]
  - RHEUMATOID NODULE [None]
